FAERS Safety Report 19969241 (Version 2)
Quarter: 2021Q4

REPORT INFORMATION
  Report Type: Spontaneous
  Country: BG (occurrence: BG)
  Receive Date: 20211019
  Receipt Date: 20211027
  Transmission Date: 20220304
  Serious: Yes (Hospitalization, Other)
  Sender: FDA-Public Use
  Company Number: BG-AMGEN-BGRSP2021157575

PATIENT

DRUGS (1)
  1. PROLIA [Suspect]
     Active Substance: DENOSUMAB
     Indication: Osteoporosis
     Dosage: UNK
     Route: 065

REACTIONS (5)
  - Hyperparathyroidism primary [Unknown]
  - Pyelonephritis chronic [Unknown]
  - Nephrolithiasis [Unknown]
  - Nephrocalcinosis [Unknown]
  - Hydronephrosis [Unknown]
